FAERS Safety Report 4531164-7 (Version None)
Quarter: 2004Q4

REPORT INFORMATION
  Report Type: 
  Country: None (occurrence: None)
  Receive Date: 20041130
  Receipt Date: 20040527
  Transmission Date: 20050328
  Serious: Yes (Disabling)
  Sender: FDA-Public Use
  Company Number: WAES 0405USA02114

PATIENT
  Sex: Female

DRUGS (2)
  1. FOSAMAX [Suspect]
     Indication: OSTEOPOROSIS
     Dosage: 70MG/WKY/PO
     Route: 048
     Dates: start: 20031001, end: 20040201
  2. ALLEGRA [Concomitant]

REACTIONS (1)
  - MYALGIA [None]
